FAERS Safety Report 8744770 (Version 2)
Quarter: 2012Q4

REPORT INFORMATION
  Report Type: Report from Study
  Country: IT (occurrence: IT)
  Receive Date: 20120825
  Receipt Date: 20120904
  Transmission Date: 20130627
  Serious: Yes (Other)
  Sender: FDA-Public Use
  Company Number: IT-ROCHE-1102494

PATIENT
  Age: 77 Year
  Sex: Male

DRUGS (2)
  1. MABTHERA [Suspect]
     Indication: NON-HODGKIN^S LYMPHOMA
     Route: 042
     Dates: start: 20120614, end: 20120814
  2. PENTOSTATIN [Concomitant]
     Route: 042
     Dates: start: 20120614, end: 20120814

REACTIONS (4)
  - Hypotension [Recovered/Resolved]
  - Clonus [Recovered/Resolved]
  - Loss of consciousness [Recovered/Resolved]
  - Hyperhidrosis [Recovered/Resolved]
